FAERS Safety Report 22390650 (Version 1)
Quarter: 2023Q2

REPORT INFORMATION
  Report Type: Report from Study
  Country: CA (occurrence: CA)
  Receive Date: 20230531
  Receipt Date: 20230531
  Transmission Date: 20230722
  Serious: Yes (Other)
  Sender: FDA-Public Use
  Company Number: CA-JNJFOC-20230563484

PATIENT
  Age: 17 Year
  Sex: Male

DRUGS (1)
  1. REMICADE [Suspect]
     Active Substance: INFLIXIMAB
     Indication: Crohn^s disease
     Route: 042
     Dates: start: 20230415

REACTIONS (4)
  - Haemorrhage [Unknown]
  - Infection [Unknown]
  - Haemorrhoids [Unknown]
  - Off label use [Unknown]

NARRATIVE: CASE EVENT DATE: 20230101
